FAERS Safety Report 6258952-3 (Version None)
Quarter: 2009Q3

REPORT INFORMATION
  Report Type: 
  Country: None (occurrence: None)
  Receive Date: 20090707
  Receipt Date: 20090623
  Transmission Date: 20100115
  Serious: Yes (Other)
  Sender: FDA-Public Use
  Company Number: DE-MYLANLABS-2009S1011225

PATIENT
  Age: 28 Year
  Sex: Female

DRUGS (4)
  1. IBUPROFEN [Suspect]
     Indication: PAIN MANAGEMENT
     Dosage: DAILY DOSE: 1 DF DOSAGE FORM EVERY DAY
     Dates: start: 20090517, end: 20090517
  2. ULTRACAIN D-S [Suspect]
     Indication: DENTAL OPERATION
     Dates: start: 20090515
  3. LAMICTAL [Concomitant]
     Indication: EPILEPSY
  4. KEPPRA [Concomitant]
     Indication: EPILEPSY

REACTIONS (4)
  - ANXIETY [None]
  - PALPITATIONS [None]
  - RESTLESSNESS [None]
  - TREMOR [None]
